FAERS Safety Report 9981115 (Version 1)
Quarter: 2014Q1

REPORT INFORMATION
  Report Type: Spontaneous
  Country: FR (occurrence: None)
  Receive Date: 20140305
  Receipt Date: 20140305
  Transmission Date: 20141002
  Serious: Yes (Hospitalization)
  Sender: FDA-Public Use
  Company Number: AUR-APL-2014-02269

PATIENT
  Age: 70 Year
  Sex: Male

DRUGS (6)
  1. METFORMIN (METFORMIN) [Suspect]
     Indication: DIABETES MELLITUS
     Dosage: 1 D
     Route: 048
     Dates: end: 20140102
  2. ALDACTONE (SPIRONOLACTONE) [Suspect]
     Indication: PRODUCT USED FOR UNKNOWN INDICATION
     Dosage: 1 DOSAGE FORMS, 1 IN 1 D
     Route: 048
     Dates: end: 20140102
  3. EUCREAS [Suspect]
     Indication: PRODUCT USED FOR UNKNOWN INDICATION
     Dosage: 2 DOSAGE FORMS, 1 IN 1 D
     Route: 048
     Dates: end: 20140102
  4. XELODA (CAPECITABINE) [Suspect]
     Indication: PRODUCT USED FOR UNKNOWN INDICATION
     Dosage: 4 DOSAGE FORMS, 1 IN 1 D
     Route: 048
     Dates: start: 20131215
  5. ZOLPIDEM (ZOLPIDEM) [Suspect]
     Indication: PRODUCT USED FOR UNKNOWN INDICATION
     Dates: end: 20140102
  6. IXPRIM [Suspect]
     Indication: PRODUCT USED FOR UNKNOWN INDICATION

REACTIONS (6)
  - Vomiting [None]
  - Renal failure acute [None]
  - Lactic acidosis [None]
  - Respiratory distress [None]
  - Decreased appetite [None]
  - Nervous system disorder [None]
